FAERS Safety Report 15409588 (Version 2)
Quarter: 2018Q4

REPORT INFORMATION
  Report Type: Spontaneous
  Country: US (occurrence: US)
  Receive Date: 20180920
  Receipt Date: 20181127
  Transmission Date: 20190204
  Serious: Yes (Other)
  Sender: FDA-Public Use
  Company Number: PHEH2018US039611

PATIENT
  Age: 55 Year
  Sex: Female

DRUGS (7)
  1. LETROZOLE. [Suspect]
     Active Substance: LETROZOLE
     Indication: BREAST CANCER METASTATIC
     Dosage: 2.5 MG, QD
     Route: 048
     Dates: start: 20180516
  2. ZOMETA [Suspect]
     Active Substance: ZOLEDRONIC ACID
     Indication: PRODUCT USED FOR UNKNOWN INDICATION
     Dosage: UNK
     Route: 065
  3. TRAMADOL + ACETAMINOFEN [Concomitant]
     Active Substance: ACETAMINOPHEN\TRAMADOL
     Indication: PRODUCT USED FOR UNKNOWN INDICATION
     Dosage: 1 DF, PRN (37.5MG-325MG)
     Route: 048
  4. IBRANCE [Suspect]
     Active Substance: PALBOCICLIB
     Indication: BREAST CANCER
     Dosage: 125 MG, QD (1-21 DAYS AND ONE WEEK OFF)
     Route: 048
     Dates: start: 20180516
  5. ONDANSETRON [Concomitant]
     Active Substance: ONDANSETRON
     Indication: PRODUCT USED FOR UNKNOWN INDICATION
     Dosage: 1 DF, Q8H, PRN
     Route: 048
  6. TRAMADOL HCL [Concomitant]
     Active Substance: TRAMADOL HYDROCHLORIDE
     Indication: PRODUCT USED FOR UNKNOWN INDICATION
     Dosage: 50 MG, PRN
     Route: 048
  7. NORCO [Concomitant]
     Active Substance: ACETAMINOPHEN\HYDROCODONE BITARTRATE
     Indication: PAIN
     Dosage: 1 DF, Q4H PRN (10MG-325MG)
     Route: 048

REACTIONS (18)
  - Alopecia [Unknown]
  - Pyrexia [Unknown]
  - Spinal column stenosis [Unknown]
  - Chills [Unknown]
  - Oropharyngeal pain [Unknown]
  - Renal cyst [Unknown]
  - Body temperature increased [Unknown]
  - Weight decreased [Unknown]
  - Neutropenia [Unknown]
  - White blood cell count decreased [Unknown]
  - Spinal osteoarthritis [Unknown]
  - Metastases to lung [Unknown]
  - Metastases to bone [Unknown]
  - Fatigue [Not Recovered/Not Resolved]
  - Neutrophil count decreased [Recovering/Resolving]
  - Lumbar vertebral fracture [Unknown]
  - Abdominal distension [Unknown]
  - Hot flush [Unknown]

NARRATIVE: CASE EVENT DATE: 20180417
